FAERS Safety Report 19998088 (Version 4)
Quarter: 2022Q1

REPORT INFORMATION
  Report Type: Spontaneous
  Country: FR (occurrence: FR)
  Receive Date: 20211026
  Receipt Date: 20220310
  Transmission Date: 20220424
  Serious: Yes (Life-Threatening, Hospitalization, Other)
  Sender: FDA-Public Use
  Company Number: FR-SA-2021SA354036

PATIENT
  Age: 60 Year
  Sex: Female

DRUGS (3)
  1. OXALIPLATIN [Suspect]
     Active Substance: OXALIPLATIN
     Indication: Metastases to peritoneum
     Dosage: 90 MG/M2 (FIRST PIPAC SESSION)
     Route: 033
     Dates: start: 2020, end: 2020
  2. OXALIPLATIN [Suspect]
     Active Substance: OXALIPLATIN
     Indication: Adenocarcinoma of colon
     Dosage: SECOND PIPAC SESSION
     Route: 033
     Dates: start: 202010
  3. OXALIPLATIN [Suspect]
     Active Substance: OXALIPLATIN
     Dosage: RECEIVED OXALIPLATIN 14 TIMES, GIVING A TOTAL DOSE OF 2,010 MG/M2).

REACTIONS (15)
  - Acute respiratory distress syndrome [Recovered/Resolved]
  - Alveolar lung disease [Recovered/Resolved]
  - Interstitial lung disease [Recovered/Resolved]
  - Off label use [Recovered/Resolved]
  - Toxicity to various agents [Recovered/Resolved]
  - Drug hypersensitivity [Recovered/Resolved]
  - Respiratory failure [Recovered/Resolved]
  - Atelectasis [Recovered/Resolved]
  - Tachypnoea [Recovered/Resolved]
  - Hypoxia [Recovered/Resolved]
  - Tachycardia [Recovered/Resolved]
  - Pleural effusion [Recovered/Resolved]
  - Chemical peritonitis [Recovered/Resolved]
  - Abdominal pain [Recovered/Resolved]
  - Encapsulating peritoneal sclerosis [Recovered/Resolved]

NARRATIVE: CASE EVENT DATE: 20200101
